FAERS Safety Report 9031125 (Version 2)
Quarter: 2013Q4

REPORT INFORMATION
  Report Type: Spontaneous
  Country: GB (occurrence: GB)
  Receive Date: 20130123
  Receipt Date: 20131010
  Transmission Date: 20140711
  Serious: Yes (Life-Threatening, Hospitalization)
  Sender: FDA-Public Use
  Company Number: GB-WATSON-2013-00767

PATIENT
  Age: 91 Year
  Sex: 0

DRUGS (26)
  1. CIPROFLOXACIN HYDROCHLORIDE (UNKNOWN) [Suspect]
     Indication: UROSEPSIS
     Dosage: 500 MG, BID
     Route: 048
     Dates: start: 20110325, end: 20110329
  2. CIPROFLOXACIN HYDROCHLORIDE (UNKNOWN) [Suspect]
     Dosage: 400 MG, BID
     Route: 042
     Dates: start: 20110324
  3. LEVOFLOXACIN (UNKNOWN) [Suspect]
     Indication: PNEUMONIA
     Dosage: 500 MG, BID
     Route: 065
     Dates: start: 20110218, end: 20110225
  4. LEVOFLOXACIN (UNKNOWN) [Suspect]
     Indication: RENAL FAILURE ACUTE
     Dosage: 500 MG, BID
     Route: 048
     Dates: start: 20110130, end: 20110206
  5. DOXYCYCLINE (UNKNOWN) [Suspect]
     Indication: CHRONIC OBSTRUCTIVE PULMONARY DISEASE
     Dosage: 100 MG, BID
     Route: 048
     Dates: start: 20100804
  6. FLUCLOXACILLIN (UNKNOWN) [Suspect]
     Indication: PRODUCT USED FOR UNKNOWN INDICATION
     Dosage: 250 MG, QID
     Route: 048
     Dates: start: 20090710, end: 20090715
  7. BENZYLPENICILLIN [Suspect]
     Indication: PNEUMONIA
     Dosage: 1.2 G, UNKNOWN; HAD 3 DOSES
     Route: 065
     Dates: start: 20110218
  8. BENZYLPENICILLIN [Suspect]
     Dosage: 600 MG, UNKNOWN; HAD 4 DOSES
     Route: 042
     Dates: start: 20110130
  9. ERTAPENEM [Suspect]
     Indication: ESCHERICHIA INFECTION
     Dosage: 1 G, DAILY
     Route: 042
     Dates: start: 20110330, end: 20110331
  10. ERTAPENEM [Suspect]
     Indication: URINARY TRACT INFECTION
  11. UNIPHYLLIN CONTINUS [Concomitant]
     Indication: PRODUCT USED FOR UNKNOWN INDICATION
     Dosage: 200 MG, BID
     Route: 048
  12. UNIPHYLLIN CONTINUS [Concomitant]
     Dosage: NAPP PHARMACEUTICALS LTD
     Route: 048
  13. THIAMINE [Concomitant]
     Indication: PRODUCT USED FOR UNKNOWN INDICATION
     Dosage: 100 MG, TID
     Route: 048
  14. THIAMINE [Concomitant]
     Route: 048
  15. VITAMIN B COMPOUND                 /00003501/ [Concomitant]
     Indication: PRODUCT USED FOR UNKNOWN INDICATION
     Dosage: 1 DF, DAILY
     Route: 048
  16. ADCAL D3 [Concomitant]
     Indication: PRODUCT USED FOR UNKNOWN INDICATION
     Dosage: 1 DF, BID
     Route: 048
  17. IPRATROPIUM BROMIDE [Concomitant]
     Indication: PRODUCT USED FOR UNKNOWN INDICATION
     Dosage: UNKNOWN DOSE, 4 TIMES DAILY; 500MICROGRAMS/2ML NEBULISER LIQUID
     Route: 050
  18. IPRATROPIUM BROMIDE [Concomitant]
     Dosage: 500MICROGRAMS/2ML NEBULISER LIQUID
     Route: 050
  19. SALBUTAMOL [Concomitant]
     Indication: PRODUCT USED FOR UNKNOWN INDICATION
     Dosage: 5 MG, QID; 5MG/2.5ML NEBULISER LIQUID
     Route: 050
  20. PARACETAMOL [Concomitant]
     Indication: PRODUCT USED FOR UNKNOWN INDICATION
     Dosage: 4 TIMES DAILY; 500MG - 1G QDS, AS NEEDED
     Route: 048
  21. QUETIAPINE [Concomitant]
     Indication: PRODUCT USED FOR UNKNOWN INDICATION
     Dosage: 25 MG, DAILY
     Route: 048
  22. QUETIAPINE [Concomitant]
     Route: 048
  23. ATORVASTATIN [Concomitant]
     Indication: PRODUCT USED FOR UNKNOWN INDICATION
     Dosage: 40 MG, DAILY
     Route: 048
  24. ASPIRIN [Concomitant]
     Indication: PRODUCT USED FOR UNKNOWN INDICATION
     Dosage: 75 MG, DAILY
     Route: 048
  25. SENNA                              /00142201/ [Concomitant]
     Indication: PRODUCT USED FOR UNKNOWN INDICATION
     Dosage: 15 MG, DAILY
     Route: 048
  26. BUMETANIDE [Concomitant]
     Indication: PRODUCT USED FOR UNKNOWN INDICATION
     Dosage: 2 MG, BID
     Route: 048

REACTIONS (7)
  - Clostridium difficile infection [Recovered/Resolved]
  - Pneumonia [Unknown]
  - Urosepsis [Unknown]
  - Confusional state [Unknown]
  - Dysuria [Unknown]
  - Hypotension [Unknown]
  - Diarrhoea [Unknown]
